FAERS Safety Report 6955706-7 (Version None)
Quarter: 2010Q3

REPORT INFORMATION
  Report Type: 
  Country: None (occurrence: None)
  Receive Date: 20100826
  Receipt Date: 20100826
  Transmission Date: 20110219
  Serious: Yes (Hospitalization)
  Sender: FDA-Public Use
  Company Number: None

PATIENT
  Age: 65 Year
  Sex: Female
  Weight: 74.3899 kg

DRUGS (2)
  1. PRAVASTATIN [Suspect]
     Indication: BLOOD CHOLESTEROL INCREASED
     Dosage: ONE PILL ONE PER DAY PO
     Route: 048
     Dates: start: 20100722, end: 20100816
  2. SIMVASTATIN [Suspect]
     Indication: BLOOD CHOLESTEROL INCREASED
     Dosage: ONE PILL ONE PER DAY PO
     Route: 048
     Dates: start: 20100818, end: 20100823

REACTIONS (10)
  - ACNE [None]
  - ASTHENIA [None]
  - FATIGUE [None]
  - HAIR DISORDER [None]
  - INITIAL INSOMNIA [None]
  - NAUSEA [None]
  - PARAESTHESIA [None]
  - SEBORRHOEA [None]
  - VERTIGO [None]
  - VOMITING [None]
